FAERS Safety Report 26086941 (Version 1)
Quarter: 2025Q4

REPORT INFORMATION
  Report Type: Spontaneous
  Country: US (occurrence: US)
  Receive Date: 20251125
  Receipt Date: 20251125
  Transmission Date: 20260117
  Serious: Yes (Other)
  Sender: AUROBINDO
  Company Number: US-AUROBINDO-AUR-APL-2025-059231

PATIENT
  Age: 41 Year
  Sex: Female

DRUGS (1)
  1. WARFARIN [Suspect]
     Active Substance: WARFARIN
     Indication: Aortic valve replacement
     Dosage: 6 MILLIGRAM, DAILY
     Route: 065

REACTIONS (1)
  - Retinal artery occlusion [Unknown]
